FAERS Safety Report 8522059-2 (Version None)
Quarter: 2012Q3

REPORT INFORMATION
  Report Type: 
  Country: None (occurrence: None)
  Receive Date: 20120719
  Receipt Date: 20120718
  Transmission Date: 20120928
  Serious: Yes (Other)
  Sender: FDA-Public Use
  Company Number: BE-BAYER-2012-064340

PATIENT
  Age: 68 Year
  Sex: Male

DRUGS (4)
  1. BUMETANIDE [Concomitant]
     Dosage: DAILY DOSE 1 MG
  2. BISOPROLOL FUMARATE [Concomitant]
     Dosage: DAILY DOSE 2.5 MG
  3. PERINDOPRIL ERBUMINE [Concomitant]
     Dosage: DAILY DOSE 4 MG
  4. ASPIRIN [Suspect]
     Dosage: DAILY DOSE 80 MG

REACTIONS (3)
  - CHEST PAIN [None]
  - DYSPHAGIA [None]
  - OESOPHAGEAL HAEMORRHAGE [None]
